FAERS Safety Report 12955711 (Version 1)
Quarter: 2016Q4

REPORT INFORMATION
  Report Type: Spontaneous
  Country: US (occurrence: US)
  Receive Date: 20161117
  Receipt Date: 20161117
  Transmission Date: 20170207
  Serious: Yes (Hospitalization)
  Sender: FDA-Public Use
  Company Number: None

PATIENT
  Age: 47 Year
  Sex: Male

DRUGS (23)
  1. ACYCLOVIR. [Concomitant]
     Active Substance: ACYCLOVIR
  2. MEROPENEM. [Concomitant]
     Active Substance: MEROPENEM
  3. ONDANSETRON [Concomitant]
     Active Substance: ONDANSETRON
  4. LORAZAPAM [Concomitant]
     Active Substance: LORAZEPAM
  5. TPN [Concomitant]
     Active Substance: AMINO ACIDS\DEXTROSE\ELECTROLYTES NOS\SOYBEAN OIL
  6. FLUCONAZOLE. [Concomitant]
     Active Substance: FLUCONAZOLE
  7. LANSOPRAZOLE. [Concomitant]
     Active Substance: LANSOPRAZOLE
  8. LIDOCAINE. [Concomitant]
     Active Substance: LIDOCAINE
  9. POTASSIUM CHLORIDE. [Concomitant]
     Active Substance: POTASSIUM CHLORIDE
  10. IFOSFAMIDE. [Suspect]
     Active Substance: IFOSFAMIDE
     Indication: NEOPLASM MALIGNANT
     Route: 042
  11. ALLOPURINOL. [Concomitant]
     Active Substance: ALLOPURINOL
  12. ALBUTEROL. [Concomitant]
     Active Substance: ALBUTEROL
  13. MORPHINE [Concomitant]
     Active Substance: MORPHINE
  14. COD LIVER OIL [Concomitant]
     Active Substance: COD LIVER OIL
  15. FUROSEMIDE. [Concomitant]
     Active Substance: FUROSEMIDE
  16. POTASSIUM PHOSPHATE [Concomitant]
     Active Substance: POTASSIUM PHOSPHATE
  17. PYRIDOXINE [Concomitant]
     Active Substance: PYRIDOXINE
  18. CARBOPLATIN. [Suspect]
     Active Substance: CARBOPLATIN
     Route: 042
     Dates: start: 20161009, end: 20161010
  19. DEXAMETHASONE. [Concomitant]
     Active Substance: DEXAMETHASONE
  20. DEXTROSE. [Concomitant]
     Active Substance: DEXTROSE
  21. MAGNESIUM SULFATE. [Concomitant]
     Active Substance: MAGNESIUM SULFATE
  22. ZINC OXIDE. [Concomitant]
     Active Substance: ZINC OXIDE
  23. INSULIN ASPART [Suspect]
     Active Substance: INSULIN ASPART

REACTIONS (6)
  - Blood potassium increased [None]
  - Infusion related reaction [None]
  - Hypertension [None]
  - Tachypnoea [None]
  - Blood phosphorus increased [None]
  - Unresponsive to stimuli [None]

NARRATIVE: CASE EVENT DATE: 20161010
